FAERS Safety Report 6742086-5 (Version None)
Quarter: 2010Q2

REPORT INFORMATION
  Report Type: 
  Country: None (occurrence: None)
  Receive Date: 20100526
  Receipt Date: 20100514
  Transmission Date: 20101027
  Serious: Yes (Hospitalization)
  Sender: FDA-Public Use
  Company Number: PHHY2010CR31596

PATIENT
  Age: 88 Year
  Sex: Male

DRUGS (3)
  1. DIOVAN [Suspect]
     Indication: HYPERTENSION
     Dosage: UNK
     Dates: start: 20100301
  2. ADALAT [Concomitant]
  3. COREG [Concomitant]

REACTIONS (3)
  - CEREBRAL ISCHAEMIA [None]
  - COUGH [None]
  - HEMIPARESIS [None]
